FAERS Safety Report 21898735 (Version 2)
Quarter: 2023Q1

REPORT INFORMATION
  Report Type: Spontaneous
  Country: ET (occurrence: ET)
  Receive Date: 20230123
  Receipt Date: 20230127
  Transmission Date: 20230418
  Serious: Yes (Hospitalization, Other)
  Sender: FDA-Public Use
  Company Number: ET-BAXTER-2023BAX010933

PATIENT
  Age: 45 Year
  Sex: Male

DRUGS (3)
  1. ONDANSETRON [Suspect]
     Active Substance: ONDANSETRON
     Indication: Dyspepsia
     Dosage: 8 MG DOSE (0.5 ML (2 MG))
     Route: 042
  2. ESOMEPRAZOLE [Concomitant]
     Active Substance: ESOMEPRAZOLE
     Indication: Duodenitis
     Dosage: 40 MG PER DAY FOR A MONTH
     Route: 048
  3. ESOMEPRAZOLE [Concomitant]
     Active Substance: ESOMEPRAZOLE
     Route: 048

REACTIONS (16)
  - Kounis syndrome [Recovered/Resolved]
  - Chest discomfort [Recovered/Resolved]
  - Injection site erythema [Recovered/Resolved]
  - Burning sensation [Recovered/Resolved]
  - Urticaria [Recovered/Resolved]
  - Hypotension [Recovered/Resolved]
  - Bronchospasm [Recovered/Resolved]
  - Troponin T increased [Recovered/Resolved]
  - Headache [Recovered/Resolved]
  - Dizziness [Recovered/Resolved]
  - Fatigue [Recovered/Resolved]
  - Left ventricular hypertrophy [Recovered/Resolved]
  - Arteriospasm coronary [Recovered/Resolved]
  - Pseudoallergic reaction [Recovered/Resolved]
  - Anaphylactoid reaction [Recovered/Resolved]
  - Myocardial injury [Recovered/Resolved]
